FAERS Safety Report 5614793-9 (Version None)
Quarter: 2008Q1

REPORT INFORMATION
  Report Type: 
  Country: None (occurrence: None)
  Receive Date: 20080111
  Receipt Date: 20071031
  Transmission Date: 20080703
  Serious: Yes (Other)
  Sender: FDA-Public Use
  Company Number: US-WYE-H00998407

PATIENT
  Age: 48 Year
  Sex: Female
  Weight: 83.99 kg

DRUGS (1)
  1. PREMPRO [Suspect]
     Indication: MENOPAUSE
     Dosage: 0.45MG 1.5MG DAILY, ORAL
     Route: 048
     Dates: start: 20050901, end: 20070930

REACTIONS (1)
  - BREAST CANCER [None]
